FAERS Safety Report 10958124 (Version 5)
Quarter: 2017Q2

REPORT INFORMATION
  Report Type: Report from Study
  Country: FR (occurrence: FR)
  Receive Date: 20150326
  Receipt Date: 20170406
  Transmission Date: 20170829
  Serious: Yes (Hospitalization, Other)
  Sender: FDA-Public Use
  Company Number: FR-GILEAD-2014-0129808

PATIENT
  Age: 78 Year
  Sex: Female
  Weight: 70 kg

DRUGS (21)
  1. IDELALISIB [Suspect]
     Active Substance: IDELALISIB
     Dosage: 100 MG, UNK
     Route: 048
     Dates: start: 20170308
  2. MONTELUKAST [Concomitant]
     Active Substance: MONTELUKAST SODIUM
  3. GLICLAZIDE [Concomitant]
     Active Substance: GLICLAZIDE
  4. OMEPRAZOLE. [Concomitant]
     Active Substance: OMEPRAZOLE
  5. ZELITREX [Concomitant]
     Active Substance: VALACYCLOVIR HYDROCHLORIDE
     Dosage: UNK
     Route: 065
     Dates: start: 201410
  6. FORMOTEROL FUMARATE [Concomitant]
     Active Substance: FORMOTEROL FUMARATE
  7. IRBESARTAN. [Concomitant]
     Active Substance: IRBESARTAN
  8. IDELALISIB [Suspect]
     Active Substance: IDELALISIB
     Dosage: 100 MG, BID
     Route: 048
     Dates: start: 20150120, end: 20160804
  9. RITUXIMAB [Suspect]
     Active Substance: RITUXIMAB
     Dosage: 375 MG/M2, ONCE
     Route: 042
     Dates: start: 201410, end: 201410
  10. RITUXIMAB [Suspect]
     Active Substance: RITUXIMAB
     Dosage: 500 MG, ONCE A MONTH X 3 MONTHS
     Route: 042
  11. RITUXIMAB [Suspect]
     Active Substance: RITUXIMAB
     Dosage: 75 MG, UNK
     Route: 042
  12. METFORMINE [Concomitant]
     Active Substance: METFORMIN HYDROCHLORIDE
  13. IDELALISIB [Suspect]
     Active Substance: IDELALISIB
     Indication: CHRONIC LYMPHOCYTIC LEUKAEMIA RECURRENT
     Dosage: 150 MG, BID, 4TH LINE
     Route: 048
     Dates: start: 20141024, end: 20141224
  14. RITUXIMAB [Suspect]
     Active Substance: RITUXIMAB
     Indication: CHRONIC LYMPHOCYTIC LEUKAEMIA RECURRENT
     Dosage: 50 MG, Q 4WEEKS
     Route: 042
  15. RITUXIMAB [Suspect]
     Active Substance: RITUXIMAB
     Dosage: 500 MG/M2, Q 15 DAYS X 2 MONTHS
     Route: 042
     Dates: start: 201410, end: 201504
  16. RITUXIMAB [Suspect]
     Active Substance: RITUXIMAB
     Dosage: 50 MG, FOR 4 WEEKS
     Route: 042
  17. FOLINORAL [Concomitant]
     Active Substance: LEUCOVORIN CALCIUM
     Dosage: UNK
     Route: 065
     Dates: start: 201410
  18. BACTRIM [Suspect]
     Active Substance: SULFAMETHOXAZOLE\TRIMETHOPRIM
     Indication: PRODUCT USED FOR UNKNOWN INDICATION
     Dosage: UNK
     Route: 065
     Dates: start: 201410, end: 201605
  19. ELTROMBOPAG [Concomitant]
     Active Substance: ELTROMBOPAG
  20. REVOLADE [Concomitant]
     Active Substance: ELTROMBOPAG
     Dosage: UNK
     Route: 065
     Dates: start: 201410
  21. ALLOPURINOL. [Concomitant]
     Active Substance: ALLOPURINOL

REACTIONS (8)
  - Pancytopenia [Recovering/Resolving]
  - Pyrexia [Unknown]
  - Iron deficiency anaemia [Unknown]
  - Lung disorder [Recovered/Resolved]
  - Asthenia [Unknown]
  - Lung infection [Recovering/Resolving]
  - Acute kidney injury [Unknown]
  - Diarrhoea [Recovered/Resolved]

NARRATIVE: CASE EVENT DATE: 2014
